FAERS Safety Report 4563965-3 (Version None)
Quarter: 2005Q1

REPORT INFORMATION
  Report Type: 
  Country: None (occurrence: None)
  Receive Date: 20050127
  Receipt Date: 20050119
  Transmission Date: 20050727
  Serious: Yes (Hospitalization)
  Sender: FDA-Public Use
  Company Number: K200500080

PATIENT
  Age: 76 Year
  Sex: Male

DRUGS (4)
  1. EPINEPHRINE [Suspect]
     Indication: ANGIONEUROTIC OEDEMA
     Dosage: 1:1000, 0.2 ML, INTRAVENOUS
     Route: 042
  2. METHYLPREDNISOLONE [Concomitant]
  3. DIPHENHYDRAMINE (DIPHENHYDRAMINE) [Concomitant]
  4. FAMOTIDINE [Concomitant]

REACTIONS (4)
  - BLOOD PRESSURE INCREASED [None]
  - ELECTROCARDIOGRAM ST-T CHANGE [None]
  - MEDICATION ERROR [None]
  - TACHYCARDIA [None]
